FAERS Safety Report 7525399-9 (Version None)
Quarter: 2011Q2

REPORT INFORMATION
  Report Type: 
  Country: None (occurrence: None)
  Receive Date: 20110526
  Receipt Date: 20110513
  Transmission Date: 20111010
  Serious: Yes (Other)
  Sender: FDA-Public Use
  Company Number: 2011MA005887

PATIENT
  Age: 18 Year
  Sex: Female

DRUGS (1)
  1. RIFAMPIN [Suspect]

REACTIONS (2)
  - TUBULOINTERSTITIAL NEPHRITIS [None]
  - RENAL TUBULAR NECROSIS [None]
